FAERS Safety Report 5902634-1 (Version None)
Quarter: 2008Q3

REPORT INFORMATION
  Report Type: 
  Country: None (occurrence: None)
  Receive Date: 20080926
  Receipt Date: 20080918
  Transmission Date: 20090109
  Serious: Yes (Hospitalization)
  Sender: FDA-Public Use
  Company Number: 2008BI019958

PATIENT
  Age: 49 Year
  Sex: Female

DRUGS (1)
  1. AVONEX [Suspect]
     Indication: MULTIPLE SCLEROSIS
     Dosage: IM; 30 UG; QW; IM
     Route: 030
     Dates: start: 20040901

REACTIONS (5)
  - ABDOMINAL OPERATION [None]
  - ABDOMINOPLASTY [None]
  - BLADDER DISORDER [None]
  - POST PROCEDURAL COMPLICATION [None]
  - URINARY RETENTION [None]
